FAERS Safety Report 12889288 (Version 1)
Quarter: 2016Q4

REPORT INFORMATION
  Report Type: Report from Study
  Country: US (occurrence: US)
  Receive Date: 20161027
  Receipt Date: 20161027
  Transmission Date: 20170207
  Serious: Yes (Death)
  Sender: FDA-Public Use
  Company Number: US-ARIAD PHARMACEUTICALS, INC-2015US004668

PATIENT
  Sex: Male

DRUGS (3)
  1. ICLUSIG [Suspect]
     Active Substance: PONATINIB
     Dosage: 15 MG, QD
     Route: 048
  2. ICLUSIG [Suspect]
     Active Substance: PONATINIB
     Dosage: 30 MG, QD
     Route: 048
  3. ICLUSIG [Suspect]
     Active Substance: PONATINIB
     Indication: NEOPLASM MALIGNANT
     Dosage: 45 MG, QD
     Route: 048
     Dates: start: 20160831

REACTIONS (5)
  - Pain in extremity [Not Recovered/Not Resolved]
  - Off label use [Unknown]
  - Limb discomfort [Not Recovered/Not Resolved]
  - Death [Fatal]
  - Peripheral swelling [Not Recovered/Not Resolved]
